FAERS Safety Report 13689394 (Version 1)
Quarter: 2017Q2

REPORT INFORMATION
  Report Type: Spontaneous
  Country: US (occurrence: US)
  Receive Date: 20170625
  Receipt Date: 20170625
  Transmission Date: 20170830
  Serious: Yes (Hospitalization, Disabling)
  Sender: FDA-Public Use
  Company Number: None

PATIENT
  Age: 33 Year
  Sex: Male
  Weight: 67.05 kg

DRUGS (3)
  1. CLONAZAPAM [Suspect]
     Active Substance: CLONAZEPAM
     Indication: TREMOR
     Dosage: ?          OTHER STRENGTH:MG;QUANTITY:180 TABLET(S);?3 TIMES A DAY ORAL
     Route: 048
  2. SEROQUEL [Concomitant]
     Active Substance: QUETIAPINE FUMARATE
  3. ESCOTALOPRAM [Concomitant]

REACTIONS (16)
  - Panic attack [None]
  - Nausea [None]
  - Disturbance in attention [None]
  - Cognitive disorder [None]
  - Feeling abnormal [None]
  - Social anxiety disorder [None]
  - Dementia [None]
  - Hyperacusis [None]
  - Insomnia [None]
  - Depression [None]
  - Memory impairment [None]
  - Anxiety [None]
  - Agoraphobia [None]
  - Impaired work ability [None]
  - Headache [None]
  - Dizziness [None]

NARRATIVE: CASE EVENT DATE: 20030101
